FAERS Safety Report 16933410 (Version 3)
Quarter: 2019Q4

REPORT INFORMATION
  Report Type: Spontaneous
  Country: DE (occurrence: DE)
  Receive Date: 20191018
  Receipt Date: 20191225
  Transmission Date: 20200122
  Serious: Yes (Other)
  Sender: FDA-Public Use
  Company Number: DE-AUROBINDO-AUR-APL-2019-067283

PATIENT
  Age: 75 Year
  Sex: Female
  Weight: 60 kg

DRUGS (6)
  1. CEFUROXIME. [Suspect]
     Active Substance: CEFUROXIME
     Indication: DIVERTICULITIS
     Dosage: 1500 MILLIGRAM, ONCE A DAY
     Route: 048
     Dates: start: 20190830
  2. CEFUROXIME. [Interacting]
     Active Substance: CEFUROXIME
     Indication: PRODUCT USED FOR UNKNOWN INDICATION
     Dosage: UNK (8 HR)
     Route: 065
     Dates: start: 20190825
  3. METRONIDAZOLE. [Interacting]
     Active Substance: METRONIDAZOLE
     Dosage: 800 MILLIGRAM, ONCE A DAY
     Route: 048
     Dates: start: 20190830
  4. CEFUROXIME. [Interacting]
     Active Substance: CEFUROXIME
     Dosage: 500 MILLIGRAM, 3 TIMES A DAY (1500 MG, QD (500 MG,8 HR))
     Route: 048
     Dates: start: 20190825
  5. METRONIDAZOLE. [Interacting]
     Active Substance: METRONIDAZOLE
     Indication: DIVERTICULITIS
     Dosage: UNK (8 HR)
     Route: 065
     Dates: start: 20190825
  6. METRONIDAZOLE. [Interacting]
     Active Substance: METRONIDAZOLE
     Dosage: 400 MILLIGRAM, TWO TIMES A DAY (800 MG, QD (400 MG,12 HR)
     Route: 048
     Dates: start: 20190825

REACTIONS (4)
  - Pruritus [Unknown]
  - Drug interaction [Unknown]
  - Erythema [Unknown]
  - Blood pressure increased [Not Recovered/Not Resolved]

NARRATIVE: CASE EVENT DATE: 20190825
